FAERS Safety Report 20982223 (Version 1)
Quarter: 2022Q2

REPORT INFORMATION
  Report Type: Spontaneous
  Country: US (occurrence: US)
  Receive Date: 20220620
  Receipt Date: 20220620
  Transmission Date: 20220720
  Serious: No
  Sender: FDA-Public Use
  Company Number: US-PFIZER INC-202200845951

PATIENT
  Age: 73 Year
  Sex: Female

DRUGS (2)
  1. SOMATROPIN [Suspect]
     Active Substance: SOMATROPIN
     Indication: Cushing^s syndrome
     Dosage: 0.4 MG, DAILY(0.4MG, EVERY DAY)
  2. SOMATROPIN [Suspect]
     Active Substance: SOMATROPIN
     Indication: Pituitary tumour

REACTIONS (3)
  - COVID-19 [Recovered/Resolved]
  - Nasopharyngitis [Not Recovered/Not Resolved]
  - Off label use [Unknown]

NARRATIVE: CASE EVENT DATE: 20220601
